FAERS Safety Report 7281778 (Version 4)
Quarter: 2013Q2

REPORT INFORMATION
  Report Type: Spontaneous
  Country: US (occurrence: None)
  Receive Date: 20091201
  Receipt Date: 20121203
  Transmission Date: 20140414
  Serious: Yes (Hospitalization)
  Sender: FDA-Public Use
  Company Number: 2009SP017678

PATIENT
  Age: 50 Year
  Sex: Female
  Weight: 63.05 kg

DRUGS (5)
  1. NUVARING [Suspect]
     Indication: MENORRHAGIA
     Dosage: 1 DF; QM;
     Dates: start: 20050603, end: 200507
  2. NUVARING [Suspect]
     Indication: MENSTRUAL CYCLE MANAGEMENT
     Dosage: 1 DF; QM;
     Dates: start: 20050603, end: 200507
  3. SYNTHROID [Concomitant]
  4. OMACOR [Concomitant]
  5. PREVACID [Concomitant]

REACTIONS (13)
  - DEEP VEIN THROMBOSIS [None]
  - SKIN ULCER [None]
  - TENDONITIS [None]
  - UTERINE LEIOMYOMA [None]
  - HYPERCHOLESTEROLAEMIA [None]
  - HYPERCOAGULATION [None]
  - CHEST PAIN [None]
  - PAIN [None]
  - HEADACHE [None]
  - PAIN IN EXTREMITY [None]
  - BREAST MASS [None]
  - OEDEMA PERIPHERAL [None]
  - Tendonitis [None]
